FAERS Safety Report 6369417-2 (Version None)
Quarter: 2009Q3

REPORT INFORMATION
  Report Type: 
  Country: None (occurrence: None)
  Receive Date: 20090917
  Receipt Date: 20090908
  Transmission Date: 20100115
  Serious: Yes (Hospitalization)
  Sender: FDA-Public Use
  Company Number: 09-001455

PATIENT
  Age: 15 Day
  Sex: Male
  Weight: 2.8 kg

DRUGS (1)
  1. LOESTRIN 24 FE [Suspect]
     Dosage: INTRA-UTERINE
     Route: 015
     Dates: start: 20080401

REACTIONS (3)
  - IMMUNE SYSTEM DISORDER [None]
  - MATERNAL DRUGS AFFECTING FOETUS [None]
  - STAPHYLOCOCCAL INFECTION [None]
